FAERS Safety Report 4382610-3 (Version None)
Quarter: 2004Q2

REPORT INFORMATION
  Report Type: 
  Country: None (occurrence: None)
  Receive Date: 20040617
  Receipt Date: 20040601
  Transmission Date: 20050107
  Serious: Yes (Other)
  Sender: FDA-Public Use
  Company Number: B0334785A

PATIENT
  Age: 45 Year
  Sex: Female

DRUGS (4)
  1. COMMIT [Suspect]
     Indication: SMOKING CESSATION THERAPY
     Dosage: 2 MG/THREE TIMES PER DAY/ TRANSDERMAL
     Route: 062
     Dates: start: 20040527, end: 20040530
  2. CANDESARTAN CILEXTIL [Concomitant]
  3. ESOMEPRAZOLE [Concomitant]
  4. FLUOXETINE HYDROCHLORIDE [Concomitant]

REACTIONS (7)
  - ASTHMA [None]
  - CONDITION AGGRAVATED [None]
  - DIZZINESS [None]
  - ERUCTATION [None]
  - HEADACHE [None]
  - NAUSEA [None]
  - SLEEP DISORDER [None]
